FAERS Safety Report 5153420-4 (Version None)
Quarter: 2006Q4

REPORT INFORMATION
  Report Type: 
  Country: None (occurrence: None)
  Receive Date: 20061109
  Receipt Date: 20061030
  Transmission Date: 20070319
  Serious: No
  Sender: FDA-Public Use
  Company Number: 2006-149905-NL

PATIENT
  Age: 32 Year
  Sex: Female

DRUGS (6)
  1. VECURONIUM BROMIDE [Suspect]
     Indication: INDUCTION OF ANAESTHESIA
  2. LIDOCAINE [Concomitant]
  3. PROPOFOL [Concomitant]
  4. SEVOFLURANE [Concomitant]
  5. NITROGEN MONOXIDE [Concomitant]
  6. CEFAZOLIN SODIUM [Concomitant]

REACTIONS (1)
  - ANAPHYLACTOID REACTION [None]
